FAERS Safety Report 24180521 (Version 1)
Quarter: 2024Q3

REPORT INFORMATION
  Report Type: Spontaneous
  Country: US (occurrence: None)
  Receive Date: 20240805
  Receipt Date: 20240805
  Transmission Date: 20241017
  Serious: Yes (Other)
  Sender: Public
  Company Number: None

PATIENT
  Age: 36 Year
  Sex: Female
  Weight: 65.25 kg

DRUGS (9)
  1. PREGABALIN [Suspect]
     Active Substance: PREGABALIN
     Indication: Endometriosis
     Dosage: OTHER QUANTITY : 1 CAPSULE(S);?FREQUENCY : AT BEDTIME;?
     Route: 048
     Dates: start: 20231101
  2. VIMPAT [Suspect]
     Active Substance: LACOSAMIDE
  3. TOPIRAMATE [Concomitant]
     Active Substance: TOPIRAMATE
  4. VENLAFAXINE HYDROCHLORIDE [Concomitant]
     Active Substance: VENLAFAXINE HYDROCHLORIDE
  5. ALTAVERA [Concomitant]
     Active Substance: ETHINYL ESTRADIOL\LEVONORGESTREL
  6. FOLIC ACID [Concomitant]
     Active Substance: FOLIC ACID
  7. CBD softgel [Concomitant]
  8. VITAMINS [Concomitant]
     Active Substance: VITAMINS
  9. PROBIOTICS NOS [Concomitant]
     Active Substance: PROBIOTICS NOS

REACTIONS (6)
  - Intrusive thoughts [None]
  - Affective disorder [None]
  - Suicidal ideation [None]
  - Brain fog [None]
  - Anhedonia [None]
  - Depression [None]

NARRATIVE: CASE EVENT DATE: 20240601
